FAERS Safety Report 14170167 (Version 1)
Quarter: 2017Q4

REPORT INFORMATION
  Report Type: Report from Study
  Country: AT (occurrence: DE)
  Receive Date: 20171108
  Receipt Date: 20171108
  Transmission Date: 20180321
  Serious: Yes (Hospitalization)
  Sender: FDA-Public Use
  Company Number: AT-AMGEN-DEUCT2017151544

PATIENT
  Sex: Male
  Weight: 80 kg

DRUGS (13)
  1. THROMBO ASS [Concomitant]
     Active Substance: ASPIRIN
     Indication: THROMBOSIS PROPHYLAXIS
     Dosage: 100 MG, QD
     Route: 048
  2. CONCOR [Concomitant]
     Active Substance: BISOPROLOL FUMARATE
     Indication: HYPERTENSION
     Dosage: 2.5 MG, QD
     Route: 048
  3. OXALIPLATIN. [Concomitant]
     Active Substance: OXALIPLATIN
     Indication: COLORECTAL CANCER METASTATIC
     Dosage: 170 MG, UNK
     Route: 042
     Dates: start: 20170721
  4. SPIROBENE [Concomitant]
     Active Substance: SPIRONOLACTONE
     Indication: HYPERTENSION
     Dosage: 25 MG, QD
     Route: 048
  5. FOLINIC ACID [Concomitant]
     Active Substance: LEUCOVORIN
     Dosage: 780 MG, UNK
     Route: 042
     Dates: start: 20170929
  6. TORASEMID [Concomitant]
     Active Substance: TORSEMIDE
     Indication: HYPERTENSION
     Dosage: 20 MG, QD
     Route: 048
  7. FOLINIC ACID [Concomitant]
     Active Substance: LEUCOVORIN
     Indication: COLORECTAL CANCER METASTATIC
     Dosage: 800 MG, UNK
     Route: 042
     Dates: start: 20170721
  8. 5 FLUOROURACIL [Concomitant]
     Active Substance: FLUOROURACIL
     Indication: COLORECTAL CANCER METASTATIC
     Dosage: 4900 MG, UNK
     Route: 042
     Dates: start: 20170721
  9. OXALIPLATIN. [Concomitant]
     Active Substance: OXALIPLATIN
     Dosage: 160 MG, UNK
     Route: 042
     Dates: start: 20170929
  10. PANTOPRAZOL [Concomitant]
     Active Substance: PANTOPRAZOLE SODIUM
     Indication: PROPHYLAXIS
     Dosage: 20 MG, QD
     Route: 048
     Dates: start: 20170711
  11. PANITUMUMAB [Suspect]
     Active Substance: PANITUMUMAB
     Indication: COLORECTAL CANCER METASTATIC
     Dosage: 540 MG, UNK
     Route: 042
     Dates: start: 20170721
  12. PANITUMUMAB [Suspect]
     Active Substance: PANITUMUMAB
     Dosage: 480 MG, UNK
     Route: 042
     Dates: start: 20170929
  13. 5 FLUOROURACIL [Concomitant]
     Active Substance: FLUOROURACIL
     Dosage: 4700 MG, UNK
     Route: 042
     Dates: start: 20170929

REACTIONS (1)
  - Anal fissure [Recovered/Resolved]

NARRATIVE: CASE EVENT DATE: 20170912
